FAERS Safety Report 25248416 (Version 2)
Quarter: 2025Q2

REPORT INFORMATION
  Report Type: Spontaneous
  Country: US (occurrence: US)
  Receive Date: 20250429
  Receipt Date: 20250516
  Transmission Date: 20250716
  Serious: No
  Sender: CIPLA
  Company Number: US-CIPLA LTD.-2025US04794

PATIENT

DRUGS (1)
  1. ALBUTEROL [Suspect]
     Active Substance: ALBUTEROL
     Indication: Pneumonia
     Route: 065

REACTIONS (4)
  - Drug dose omission by device [Unknown]
  - Product prescribing issue [Unknown]
  - Device mechanical issue [Unknown]
  - Device delivery system issue [Unknown]
